FAERS Safety Report 8174428-0 (Version None)
Quarter: 2012Q1

REPORT INFORMATION
  Report Type: 
  Country: None (occurrence: None)
  Receive Date: 20120229
  Receipt Date: 20120224
  Transmission Date: 20120608
  Serious: Yes (Hospitalization, Other)
  Sender: FDA-Public Use
  Company Number: US-ABBOTT-12P-163-0909100-00

PATIENT
  Sex: Female
  Weight: 51.756 kg

DRUGS (9)
  1. HUMIRA [Suspect]
     Indication: CROHN'S DISEASE
     Dates: start: 20070101, end: 20111001
  2. ENTOCORT EC [Concomitant]
     Indication: CROHN'S DISEASE
  3. UNKNOWN MEDICATION [Concomitant]
     Indication: HYPERSENSITIVITY
  4. XIFAXAN [Concomitant]
     Indication: CROHN'S DISEASE
  5. WELLBUTRIN [Concomitant]
     Indication: ANXIETY
  6. PROPRANOLOL [Concomitant]
     Indication: VARICES OESOPHAGEAL
  7. HUMIRA [Suspect]
     Indication: PSORIASIS
  8. PENTASA [Concomitant]
     Indication: CROHN'S DISEASE
  9. PREDNISONE [Suspect]
     Indication: CROHN'S DISEASE

REACTIONS (8)
  - FATIGUE [None]
  - MALAISE [None]
  - SINUS CONGESTION [None]
  - PNEUMONIA PRIMARY ATYPICAL [None]
  - OXYGEN SATURATION DECREASED [None]
  - OPPORTUNISTIC INFECTION [None]
  - IMMUNODEFICIENCY [None]
  - DYSPNOEA [None]
